FAERS Safety Report 26143403 (Version 1)
Quarter: 2025Q4

REPORT INFORMATION
  Report Type: Spontaneous
  Country: EU (occurrence: EU)
  Receive Date: 20251211
  Receipt Date: 20251211
  Transmission Date: 20260118
  Serious: Yes (Other)
  Sender: ROCHE
  Company Number: EU-ROCHE-10000231389

PATIENT
  Age: 89 Year
  Sex: Female

DRUGS (1)
  1. VABYSMO [Suspect]
     Active Substance: FARICIMAB-SVOA
     Indication: Age-related macular degeneration
     Dosage: FREQUENCY: 7 WEEKS? LAST VABYSMO INJECTION PRIOR TO AE: 20-JAN-2025
     Dates: start: 20240129, end: 20250120

REACTIONS (5)
  - Vitritis [Unknown]
  - Anterior chamber inflammation [Recovered/Resolved]
  - Visual impairment [Unknown]
  - Age-related macular degeneration [Unknown]
  - Iridocyclitis [Unknown]

NARRATIVE: CASE EVENT DATE: 20250212
